FAERS Safety Report 7009858-3 (Version None)
Quarter: 2010Q3

REPORT INFORMATION
  Report Type: 
  Country: None (occurrence: None)
  Receive Date: 20100923
  Receipt Date: 20100922
  Transmission Date: 20110219
  Serious: Yes (Death)
  Sender: FDA-Public Use
  Company Number: US-BAYER-201040261GPV

PATIENT

DRUGS (4)
  1. SORAFENIB [Suspect]
     Indication: PANCREATIC CARCINOMA NON-RESECTABLE
     Route: 048
  2. SORAFENIB [Suspect]
  3. GEMCITABINE [Suspect]
     Indication: PANCREATIC CARCINOMA NON-RESECTABLE
     Dosage: X 3 EVERY 4 WEEK/CYCLE FOR 1  CYCLE
     Route: 042
  4. GEMCITABINE [Suspect]
     Route: 042

REACTIONS (1)
  - PSEUDOMONAS INFECTION [None]
